FAERS Safety Report 24872983 (Version 1)
Quarter: 2025Q1

REPORT INFORMATION
  Report Type: Spontaneous
  Country: US (occurrence: None)
  Receive Date: 20250121
  Receipt Date: 20250121
  Transmission Date: 20250409
  Serious: Yes (Hospitalization)
  Sender: FDA-CTU
  Company Number: None

PATIENT
  Age: 67 Year
  Sex: Male

DRUGS (1)
  1. ENTECAVIR [Suspect]
     Active Substance: ENTECAVIR
     Indication: Rectosigmoid cancer
     Dosage: FREQUENCY : WEEKLY;?
     Route: 048
     Dates: start: 202406

REACTIONS (1)
  - Haemodialysis [None]

NARRATIVE: CASE EVENT DATE: 20241114
